FAERS Safety Report 5858616-1 (Version None)
Quarter: 2008Q3

REPORT INFORMATION
  Report Type: 
  Country: None (occurrence: None)
  Receive Date: 20080826
  Receipt Date: 20080815
  Transmission Date: 20090109
  Serious: Yes (Death, Hospitalization)
  Sender: FDA-Public Use
  Company Number: SE-PFIZER INC-2008068742

PATIENT
  Sex: Female

DRUGS (6)
  1. SUTENT [Suspect]
     Indication: RENAL CANCER
     Route: 048
     Dates: start: 20071203, end: 20080530
  2. ZOMETA [Suspect]
     Indication: RENAL CANCER
     Dosage: DAILY DOSE:4MG
     Route: 042
     Dates: start: 20080124, end: 20080522
  3. LEVOTHYROXINE SODIUM [Concomitant]
     Route: 048
  4. FLUDENT [Concomitant]
  5. LOSEC MUPS [Concomitant]
     Route: 048
  6. ZOPICLONE [Concomitant]
     Route: 048

REACTIONS (1)
  - HEPATIC NECROSIS [None]
